FAERS Safety Report 4995520-5 (Version None)
Quarter: 2006Q1

REPORT INFORMATION
  Report Type: 
  Country: None (occurrence: None)
  Receive Date: 20060315
  Receipt Date: 20060105
  Transmission Date: 20060701
  Serious: Yes (Other)
  Sender: FDA-Public Use
  Company Number: 431290

PATIENT
  Age: 63 Year
  Sex: Female

DRUGS (2)
  1. BONIVA [Suspect]
     Indication: OSTEOPOROSIS
     Dosage: 150 MG   1 PER MONTH  ORAL
     Route: 048
     Dates: start: 20051012, end: 20051212
  2. FOSAMAX [Concomitant]

REACTIONS (5)
  - ARTHRITIS [None]
  - CYST [None]
  - INFLUENZA LIKE ILLNESS [None]
  - SCLERODERMA [None]
  - SYNOVIAL CYST [None]
